FAERS Safety Report 5437289-6 (Version None)
Quarter: 2007Q3

REPORT INFORMATION
  Report Type: 
  Country: None (occurrence: None)
  Receive Date: 20070831
  Receipt Date: 20070823
  Transmission Date: 20080115
  Serious: No
  Sender: FDA-Public Use
  Company Number: A0673268A

PATIENT
  Age: 20 Year

DRUGS (1)
  1. ALLI [Suspect]

REACTIONS (14)
  - ANOREXIA [None]
  - DIARRHOEA [None]
  - ELEVATED MOOD [None]
  - FAECES DISCOLOURED [None]
  - FATIGUE [None]
  - FEELING OF RELAXATION [None]
  - FLATULENCE [None]
  - GASTROINTESTINAL DISORDER [None]
  - HEADACHE [None]
  - LIBIDO DECREASED [None]
  - MALAISE [None]
  - MENSTRUAL DISORDER [None]
  - RECTAL DISCHARGE [None]
  - THINKING ABNORMAL [None]
